FAERS Safety Report 7987804 (Version 2)
Quarter: 2016Q1

REPORT INFORMATION
  Report Type: Report from Study
  Country: NL (occurrence: NL)
  Receive Date: 20110613
  Receipt Date: 20160104
  Transmission Date: 20160526
  Serious: Yes (Hospitalization)
  Sender: FDA-Public Use
  Company Number: PHHO2011NL09642

PATIENT
  Age: 48 Year
  Sex: Male
  Weight: 66 kg

DRUGS (4)
  1. MYCOPHENOLIC ACID. [Suspect]
     Active Substance: MYCOPHENOLIC ACID
     Dosage: FULL DOSE
     Route: 048
     Dates: start: 20150402
  2. SANDIMMUN [Suspect]
     Active Substance: CYCLOSPORINE
     Indication: STEM CELL TRANSPLANT
     Dosage: 400 MG, UNK
     Route: 048
     Dates: start: 20110509
  3. MYCOPHENOLIC ACID. [Suspect]
     Active Substance: MYCOPHENOLIC ACID
     Indication: STEM CELL TRANSPLANT
     Dosage: 2160 MG, UNK
     Route: 048
     Dates: start: 20110512
  4. SANDIMMUN [Suspect]
     Active Substance: CYCLOSPORINE
     Dosage: 170 MG, UNK
     Route: 048
     Dates: start: 201504

REACTIONS (2)
  - Febrile neutropenia [Recovered/Resolved]
  - Febrile neutropenia [Recovered/Resolved]

NARRATIVE: CASE EVENT DATE: 20110604
